FAERS Safety Report 8428053-4 (Version None)
Quarter: 2012Q2

REPORT INFORMATION
  Report Type: 
  Country: None (occurrence: None)
  Receive Date: 20120611
  Receipt Date: 20120604
  Transmission Date: 20120825
  Serious: Yes (Hospitalization, Other)
  Sender: FDA-Public Use
  Company Number: FR-ABBOTT-12P-056-0939032-00

PATIENT
  Age: 62 Year
  Sex: Male
  Weight: 80 kg

DRUGS (1)
  1. KALETRA [Suspect]
     Indication: HIV INFECTION
     Dates: start: 20040426

REACTIONS (2)
  - METABOLIC SYNDROME [None]
  - MYOCARDIAL INFARCTION [None]
